FAERS Safety Report 8760005 (Version 1)
Quarter: 2012Q4

REPORT INFORMATION
  Report Type: 
  Country: US (occurrence: US)
  Receive Date: 20120829
  Receipt Date: 20120829
  Transmission Date: 20130627
  Serious: Yes (Hospitalization, Disabling, Other)
  Sender: FDA-Public Use
  Company Number: US-009507513-2011SP012499

PATIENT

DRUGS (3)
  1. NUVARING [Suspect]
     Indication: CONTRACEPTION
     Dates: start: 20090114, end: 20090710
  2. SYNTHROID [Concomitant]
     Indication: HYPOTHYROIDISM
     Dosage: TAKES 2 TABLETS ON SATURDAYS
     Dates: start: 2002
  3. CHROMIUM PICOLINATE (+) EPHEDRA (+) GARCINIA (+) GUARANA (+) LEVOCARNI [Concomitant]
     Indication: PRODUCT USED FOR UNKNOWN INDICATION
     Dates: end: 20090425

REACTIONS (13)
  - Hypercoagulation [Unknown]
  - Pleurisy [Unknown]
  - Dyspnoea [Unknown]
  - Sinus arrhythmia [Unknown]
  - Chest pain [Unknown]
  - Myofascial pain syndrome [Unknown]
  - Deep vein thrombosis [Unknown]
  - Emotional disorder [Unknown]
  - Mental disorder [Unknown]
  - Oedema peripheral [Unknown]
  - Pain in extremity [Unknown]
  - Urinary tract infection [Unknown]
  - Herpes simplex [Unknown]
